FAERS Safety Report 8579126-7 (Version None)
Quarter: 2012Q3

REPORT INFORMATION
  Report Type: 
  Country: None (occurrence: None)
  Receive Date: 20120808
  Receipt Date: 20120712
  Transmission Date: 20120928
  Serious: Yes (Life-Threatening, Other)
  Sender: FDA-Public Use
  Company Number: US-ROCHE-1086300

PATIENT
  Sex: Female
  Weight: 60.836 kg

DRUGS (5)
  1. FLUOROURACIL [Concomitant]
     Route: 042
  2. LEUCOVORIN CALCIUM [Concomitant]
     Indication: COLON CANCER
     Dates: start: 20120424
  3. AVASTIN [Suspect]
     Indication: COLON CANCER
     Route: 042
     Dates: start: 20120508, end: 20120508
  4. FLUOROURACIL [Concomitant]
     Route: 040
     Dates: start: 20120424
  5. OXALIPLATIN [Concomitant]
     Indication: COLON CANCER
     Dates: start: 20120424

REACTIONS (4)
  - RASH [None]
  - BACK PAIN [None]
  - SWELLING FACE [None]
  - PYREXIA [None]
